FAERS Safety Report 8281756-7 (Version None)
Quarter: 2012Q2

REPORT INFORMATION
  Report Type: 
  Country: None (occurrence: None)
  Receive Date: 20120413
  Receipt Date: 20120402
  Transmission Date: 20120825
  Serious: Yes (Other)
  Sender: FDA-Public Use
  Company Number: US-BAYER-2012-018150

PATIENT
  Sex: Female

DRUGS (1)
  1. YASMIN [Suspect]
     Indication: ENDOMETRIOSIS
     Dosage: UNK
     Dates: start: 20090101

REACTIONS (10)
  - ANXIETY [None]
  - GALLBLADDER POLYP [None]
  - INJURY [None]
  - FEAR [None]
  - CHEST PAIN [None]
  - DEEP VEIN THROMBOSIS [None]
  - PAIN IN EXTREMITY [None]
  - PAIN [None]
  - ABDOMINAL PAIN UPPER [None]
  - NERVOUSNESS [None]
